FAERS Safety Report 16993332 (Version 1)
Quarter: 2019Q4

REPORT INFORMATION
  Report Type: Report from Study
  Country: CA (occurrence: CA)
  Receive Date: 20191105
  Receipt Date: 20191105
  Transmission Date: 20200122
  Serious: Yes (Other)
  Sender: FDA-Public Use
  Company Number: CA-PFIZER INC-2019476135

PATIENT
  Age: 59 Year
  Sex: Female

DRUGS (10)
  1. METHOTREXATE SODIUM. [Suspect]
     Active Substance: METHOTREXATE SODIUM
     Route: 065
  2. BETAMETHASONE VALERATE. [Concomitant]
     Active Substance: BETAMETHASONE VALERATE
     Route: 065
  3. REMICADE [Concomitant]
     Active Substance: INFLIXIMAB
     Route: 065
  4. ENBREL [Concomitant]
     Active Substance: ETANERCEPT
     Route: 065
  5. AMEVIVE [Concomitant]
     Active Substance: ALEFACEPT
     Route: 065
  6. DOVONEX [Concomitant]
     Active Substance: CALCIPOTRIENE
     Route: 065
  7. BETAMETHASONE DIPROPIONATE/CALCIPOTRIOL [Concomitant]
     Route: 065
  8. STELARA [Concomitant]
     Active Substance: USTEKINUMAB
     Route: 065
  9. COSENTYX [Suspect]
     Active Substance: SECUKINUMAB
     Indication: PSORIASIS
     Dosage: 300.0 MG, MONTHLY
     Route: 058
  10. COSENTYX [Suspect]
     Active Substance: SECUKINUMAB
     Indication: PSORIASIS
     Dosage: 300.0 MG, MONTHLY
     Route: 058

REACTIONS (12)
  - Therapeutic response decreased [Recovering/Resolving]
  - Sciatic nerve neuropathy [Recovering/Resolving]
  - Gait disturbance [Recovering/Resolving]
  - Psoriasis [Recovering/Resolving]
  - Pulmonary hypertension [Recovering/Resolving]
  - Sleep apnoea syndrome [Recovering/Resolving]
  - Dyspnoea [Recovering/Resolving]
  - Nasal congestion [Recovering/Resolving]
  - Nasopharyngitis [Recovering/Resolving]
  - Pruritus [Recovering/Resolving]
  - Stress [Recovering/Resolving]
  - Discomfort [Recovering/Resolving]
